FAERS Safety Report 10648087 (Version 3)
Quarter: 2015Q1

REPORT INFORMATION
  Report Type: Spontaneous
  Country: US (occurrence: None)
  Receive Date: 20141210
  Receipt Date: 20150309
  Transmission Date: 20150720
  Serious: Yes (Other)
  Sender: FDA-Public Use
  Company Number: RAP-0274-2014

PATIENT
  Age: 36 Year
  Sex: Male
  Weight: 88.45 kg

DRUGS (1)
  1. PROCYSBI DELAYED-RELEASE [Suspect]
     Active Substance: CYSTEAMINE BITARTRATE
     Indication: CYSTINOSIS
     Dosage: 1350 MG (675 MG, 1 IN 12 HR), ORAL
     Route: 048

REACTIONS (4)
  - Lymph gland infection [None]
  - Condition aggravated [None]
  - Oral disorder [None]
  - Lymphadenopathy [None]

NARRATIVE: CASE EVENT DATE: 20150126
